FAERS Safety Report 15889689 (Version 1)
Quarter: 2019Q1

REPORT INFORMATION
  Report Type: Spontaneous
  Country: US (occurrence: US)
  Receive Date: 20190130
  Receipt Date: 20190130
  Transmission Date: 20190417
  Serious: Yes (Life-Threatening)
  Sender: FDA-Public Use
  Company Number: US-INSMED, INC.-US-INS-19-00200

PATIENT
  Sex: Female

DRUGS (2)
  1. ARIKAYCE [Suspect]
     Active Substance: AMIKACIN
     Indication: MYCOBACTERIAL INFECTION
     Route: 055
     Dates: start: 20181213
  2. LAMIRA NEBULIZER SYSTEM [Suspect]
     Active Substance: DEVICE

REACTIONS (7)
  - Anaphylactic reaction [Unknown]
  - Dysphonia [Unknown]
  - Bronchospasm [Unknown]
  - Dyspnoea [Unknown]
  - Rash [Unknown]
  - Tremor [Unknown]
  - Pharyngeal oedema [Unknown]
